FAERS Safety Report 11559487 (Version 1)
Quarter: 2015Q3

REPORT INFORMATION
  Report Type: Spontaneous
  Country: US (occurrence: US)
  Receive Date: 20150916
  Receipt Date: 20150916
  Transmission Date: 20151125
  Serious: No
  Sender: FDA-Public Use
  Company Number: US-ELI_LILLY_AND_COMPANY-US200808003168

PATIENT
  Age: 62 Year
  Sex: Female

DRUGS (3)
  1. VITAMIN D [Concomitant]
     Active Substance: CHOLECALCIFEROL
     Dosage: 5000 U, 2/W
     Dates: start: 2008
  2. FORTEO [Suspect]
     Active Substance: TERIPARATIDE
     Indication: OSTEOPOROSIS
     Dates: start: 20080718, end: 20080810
  3. VITAMIN D [Concomitant]
     Active Substance: CHOLECALCIFEROL
     Indication: VITAMIN SUPPLEMENTATION
     Dosage: UNK

REACTIONS (9)
  - Diverticulitis [Recovering/Resolving]
  - Bone pain [Not Recovered/Not Resolved]
  - Arthropathy [Unknown]
  - Bone loss [Unknown]
  - Finger deformity [Not Recovered/Not Resolved]
  - Arthritis [Unknown]
  - Feeling abnormal [Not Recovered/Not Resolved]
  - Vitamin D decreased [Recovering/Resolving]
  - Peripheral swelling [Not Recovered/Not Resolved]

NARRATIVE: CASE EVENT DATE: 2008
